FAERS Safety Report 4264735-6 (Version None)
Quarter: 2004Q1

REPORT INFORMATION
  Report Type: 
  Country: None (occurrence: None)
  Receive Date: 20040102
  Receipt Date: 20031212
  Transmission Date: 20041129
  Serious: Yes (Death)
  Sender: FDA-Public Use
  Company Number: USA031254593

PATIENT
  Age: 58 Year
  Sex: Male

DRUGS (4)
  1. GEMZAR [Suspect]
     Indication: COLON CANCER
     Dates: start: 20030506
  2. GEMZAR [Suspect]
     Indication: METASTASES TO LIVER
     Dates: start: 20030506
  3. THALIDOMIDE [Concomitant]
  4. CAMPTOSAR [Concomitant]

REACTIONS (1)
  - MYOCARDIAL INFARCTION [None]
